FAERS Safety Report 17316770 (Version 1)
Quarter: 2020Q1

REPORT INFORMATION
  Report Type: Spontaneous
  Country: US (occurrence: US)
  Receive Date: 20200124
  Receipt Date: 20200124
  Transmission Date: 20200409
  Serious: No
  Sender: FDA-Public Use
  Company Number: US-PERRIGO-19US001886

PATIENT
  Age: 10 Year
  Sex: Female

DRUGS (2)
  1. IBUPROFEN. [Suspect]
     Active Substance: IBUPROFEN
     Dosage: 250 MG, SINGLE
     Route: 048
     Dates: start: 20190127, end: 20190127
  2. IBUPROFEN. [Suspect]
     Active Substance: IBUPROFEN
     Indication: PYREXIA
     Dosage: UNKNOWN, SINGLE AT 1420
     Route: 048
     Dates: start: 20190126, end: 20190126

REACTIONS (4)
  - Abdominal pain upper [Unknown]
  - Hyperhidrosis [Unknown]
  - Delirium [Unknown]
  - Slow response to stimuli [Unknown]

NARRATIVE: CASE EVENT DATE: 2019
